FAERS Safety Report 13095088 (Version 1)
Quarter: 2017Q1

REPORT INFORMATION
  Report Type: Other
  Country: US (occurrence: US)
  Receive Date: 20170106
  Receipt Date: 20170106
  Transmission Date: 20170428
  Serious: Yes (Life-Threatening)
  Sender: FDA-Public Use
  Company Number: US-GRANULES INDIA LIMITED-1061684

PATIENT
  Age: 22 Year
  Sex: Female

DRUGS (1)
  1. IBUPROFEN. [Suspect]
     Active Substance: IBUPROFEN
     Indication: MENSTRUAL DISCOMFORT

REACTIONS (7)
  - Lip swelling [Unknown]
  - Blister [Unknown]
  - Macule [Unknown]
  - Pruritus [Unknown]
  - Toxic epidermal necrolysis [Unknown]
  - Papule [Unknown]
  - Hypotension [Unknown]
